FAERS Safety Report 6740396-9 (Version None)
Quarter: 2010Q2

REPORT INFORMATION
  Report Type: 
  Country: None (occurrence: None)
  Receive Date: 20100525
  Receipt Date: 20100518
  Transmission Date: 20101027
  Serious: Yes (Other)
  Sender: FDA-Public Use
  Company Number: US-BAYER-200932390NA

PATIENT
  Age: 28 Year
  Sex: Female
  Weight: 130 kg

DRUGS (2)
  1. MIRENA [Suspect]
     Indication: CONTRACEPTION
     Dosage: CONTINUOUS
     Route: 015
     Dates: start: 20071117, end: 20090818
  2. PROZAC [Concomitant]
     Route: 048
     Dates: start: 20070210, end: 20090801

REACTIONS (4)
  - AMENORRHOEA [None]
  - DEVICE DISLOCATION [None]
  - PREGNANCY WITH CONTRACEPTIVE DEVICE [None]
  - VAGINAL HAEMORRHAGE [None]
